FAERS Safety Report 5767150-9 (Version None)
Quarter: 2008Q2

REPORT INFORMATION
  Report Type: 
  Country: None (occurrence: None)
  Receive Date: 20080609
  Receipt Date: 20080529
  Transmission Date: 20081010
  Serious: Yes (Hospitalization)
  Sender: FDA-Public Use
  Company Number: 08P-062-0454044-00

PATIENT
  Age: 1 Year
  Sex: Female

DRUGS (2)
  1. SYNAGIS [Suspect]
     Indication: ANTIVIRAL PROPHYLAXIS
     Dosage: 15MG/KG PER MONTH (15MG/KG PER MONTH)
     Dates: start: 20070901, end: 20071201
  2. SYNAGIS [Suspect]
     Indication: ANTIVIRAL PROPHYLAXIS
     Dosage: 15MG/KG PER MONTH (15MG/KG PER MONTH)
     Dates: start: 20080201, end: 20080301

REACTIONS (3)
  - BRONCHITIS CHRONIC [None]
  - CROUP INFECTIOUS [None]
  - DIET REFUSAL [None]
